FAERS Safety Report 15764964 (Version 3)
Quarter: 2019Q3

REPORT INFORMATION
  Report Type: Report from Study
  Country: US (occurrence: US)
  Receive Date: 20181227
  Receipt Date: 20190806
  Transmission Date: 20191004
  Serious: Yes (Hospitalization, Other)
  Sender: FDA-Public Use
  Company Number: US-SAKK-2018SA341873AA

PATIENT
  Age: 69 Year
  Sex: Female

DRUGS (3)
  1. INSULIN GLULISINE [Suspect]
     Active Substance: INSULIN GLULISINE
     Indication: TYPE 2 DIABETES MELLITUS
     Dosage: 6 AT BREAKFAST, 6 AT LUNCH 8 AT DINNER 8 AT BEDTIME
     Route: 058
  2. HUMALOG [Concomitant]
     Active Substance: INSULIN LISPRO
     Indication: TYPE 2 DIABETES MELLITUS
     Dosage: UNK UNK, UNK
  3. WARFARIN [Concomitant]
     Active Substance: WARFARIN
     Indication: TYPE 2 DIABETES MELLITUS
     Dosage: 2.5 MG, QD
     Dates: start: 2016

REACTIONS (11)
  - Ligament sprain [Recovered/Resolved]
  - Unevaluable event [Recovered/Resolved]
  - Speech disorder [Recovered/Resolved]
  - Vomiting [Recovered/Resolved]
  - Dizziness [Recovered/Resolved]
  - Dysgraphia [Recovered/Resolved]
  - Accident [Unknown]
  - Arterial occlusive disease [Recovered/Resolved]
  - Product dispensing error [Unknown]
  - Cerebrovascular accident [Recovered/Resolved]
  - Vision blurred [Recovered/Resolved]

NARRATIVE: CASE EVENT DATE: 20180830
